FAERS Safety Report 10029745 (Version 1)
Quarter: 2014Q1

REPORT INFORMATION
  Report Type: Spontaneous
  Country: US (occurrence: None)
  Receive Date: 20140321
  Receipt Date: 20140321
  Transmission Date: 20141002
  Serious: Yes (Hospitalization)
  Sender: FDA-Public Use
  Company Number: None

PATIENT
  Age: 60 Year
  Sex: Female
  Weight: 54.5 kg

DRUGS (2)
  1. COPEGUS [Suspect]
     Indication: HEPATITIS C
     Route: 048
     Dates: start: 20140131
  2. SOVALDI [Suspect]
     Route: 048
     Dates: start: 20140131

REACTIONS (4)
  - Fall [None]
  - Injury [None]
  - Pain in extremity [None]
  - Arthralgia [None]
